FAERS Safety Report 6055760-3 (Version None)
Quarter: 2009Q1

REPORT INFORMATION
  Report Type: 
  Country: None (occurrence: None)
  Receive Date: 20090128
  Receipt Date: 20090121
  Transmission Date: 20090719
  Serious: Yes (Death, Other)
  Sender: FDA-Public Use
  Company Number: US-WATSON-2009-00326

PATIENT
  Age: 50 Year
  Sex: Female

DRUGS (3)
  1. FENTANYL-75 [Suspect]
     Indication: ORAL PAIN
     Dosage: USED FENTANYL PATCHES LESS THAN 2 WEEKS
     Route: 062
     Dates: start: 20081125, end: 20081208
  2. PERCOCET [Concomitant]
     Indication: ORAL PAIN
     Dosage: UNK
     Route: 048
     Dates: end: 20081208
  3. STEROIDS [Concomitant]
     Indication: ORAL NEOPLASM
     Dosage: UNK
     Route: 048
     Dates: end: 20081208

REACTIONS (10)
  - ANXIETY [None]
  - ASTHENIA [None]
  - CARDIAC ARREST [None]
  - DRY MOUTH [None]
  - HYPERHIDROSIS [None]
  - HYPERVENTILATION [None]
  - INTENTIONAL DRUG MISUSE [None]
  - LOSS OF CONSCIOUSNESS [None]
  - RESPIRATORY ARREST [None]
  - WEIGHT DECREASED [None]
